FAERS Safety Report 9001484 (Version 3)
Quarter: 2013Q2

REPORT INFORMATION
  Report Type: Spontaneous
  Country: FR (occurrence: FR)
  Receive Date: 20130107
  Receipt Date: 20130416
  Transmission Date: 20140414
  Serious: Yes (Hospitalization)
  Sender: FDA-Public Use
  Company Number: PHHY2012FR122194

PATIENT
  Age: 79 Year
  Sex: Female

DRUGS (12)
  1. NISISCO [Suspect]
     Indication: HYPERTENSION
     Dosage: 1 DF, DAILY (160 MG VALS AND 12.5 MG HCTZ)
     Route: 048
     Dates: end: 20121123
  2. ATENOLOL [Suspect]
     Dosage: 100 MG, BID
     Dates: end: 20121123
  3. TAHOR [Suspect]
     Indication: DYSLIPIDAEMIA
     Dosage: 1 DF, (10 MG) DAILY
     Route: 048
     Dates: end: 20121123
  4. GLUCOPHAGE [Suspect]
     Indication: TYPE 2 DIABETES MELLITUS
     Dosage: 500 MG, BID
     Route: 048
  5. DIAMICRON [Suspect]
     Indication: TYPE 2 DIABETES MELLITUS
     Dosage: 0.5 DF (80MG), BID
     Route: 048
  6. DOLIPRANE [Suspect]
     Dosage: UNK UKN, UNK
     Route: 048
     Dates: end: 20121123
  7. PROFENID [Concomitant]
     Dosage: UNK UKN, UNK
     Dates: start: 201207
  8. TRAMADOL [Concomitant]
     Dosage: UNK UKN, UNK
     Dates: start: 201207
  9. KETUM [Concomitant]
     Dosage: UNK UKN, UNK
     Dates: start: 201207
  10. AERIUS [Concomitant]
     Dosage: UNK UKN, UNK
     Dates: start: 201207
  11. PRAVASTATIN [Concomitant]
     Dosage: UNK UKN, UNK
     Dates: start: 201207
  12. AMOXICILLIN [Concomitant]
     Indication: BLISTER
     Dosage: UNK UKN, UNK
     Dates: start: 201207

REACTIONS (11)
  - Dermatitis bullous [Recovering/Resolving]
  - Blister [Not Recovered/Not Resolved]
  - Urticaria [Unknown]
  - Erythema [Unknown]
  - Pruritus [Unknown]
  - Eosinophilia [Recovered/Resolved]
  - Renal failure [Unknown]
  - Oedema peripheral [Unknown]
  - Hypotension [Unknown]
  - Thyroid function test abnormal [Unknown]
  - Escherichia test positive [Unknown]
